FAERS Safety Report 5084746-0 (Version None)
Quarter: 2006Q3

REPORT INFORMATION
  Report Type: 
  Country: None (occurrence: None)
  Receive Date: 20060815
  Receipt Date: 20060801
  Transmission Date: 20061208
  Serious: Yes (Other)
  Sender: FDA-Public Use
  Company Number: ES200607001119

PATIENT
  Sex: Male

DRUGS (1)
  1. CIALIS [Suspect]
     Indication: ERECTILE DYSFUNCTION
     Dosage: 20 MG, 2/W, ORAL
     Route: 048
     Dates: start: 20050501, end: 20060224

REACTIONS (2)
  - EYELID OEDEMA [None]
  - OCULAR MYASTHENIA [None]
